FAERS Safety Report 17844051 (Version 2)
Quarter: 2020Q2

REPORT INFORMATION
  Report Type: Report from Study
  Country: FR (occurrence: FR)
  Receive Date: 20200601
  Receipt Date: 20200626
  Transmission Date: 20200714
  Serious: Yes (Hospitalization, Other)
  Sender: FDA-Public Use
  Company Number: FR-BRISTOL-MYERS SQUIBB COMPANY-BMS-2020-041923

PATIENT
  Sex: Male
  Weight: 93 kg

DRUGS (4)
  1. NIVOLUMAB [Suspect]
     Active Substance: NIVOLUMAB
     Indication: SQUAMOUS CELL CARCINOMA OF HEAD AND NECK
     Dosage: 240 MILLIGRAM, LEAD IN PHASE D-14 _D-10
     Route: 065
     Dates: start: 20191031
  2. NIVOLUMAB [Suspect]
     Active Substance: NIVOLUMAB
     Indication: PRODUCT USED FOR UNKNOWN INDICATION
     Dosage: 360 MILLIGRAM
     Route: 065
     Dates: start: 20191118, end: 20191231
  3. CISPLATIN. [Suspect]
     Active Substance: CISPLATIN
     Indication: PRODUCT USED FOR UNKNOWN INDICATION
     Route: 065
  4. NIVOLUMAB [Suspect]
     Active Substance: NIVOLUMAB
     Indication: PRODUCT USED FOR UNKNOWN INDICATION
     Dosage: 480 MILLIGRAM, MAINTAINENCE
     Route: 065
     Dates: start: 20200204, end: 20200428

REACTIONS (2)
  - Facial paralysis [Not Recovered/Not Resolved]
  - Neuritis [Not Recovered/Not Resolved]

NARRATIVE: CASE EVENT DATE: 20200520
